FAERS Safety Report 9356693 (Version 1)
Quarter: 2013Q2

REPORT INFORMATION
  Report Type: Report from Study
  Country: JP (occurrence: JP)
  Receive Date: 20130619
  Receipt Date: 20130619
  Transmission Date: 20140414
  Serious: Yes (Other)
  Sender: FDA-Public Use
  Company Number: JP-009507513-1304JPN012450

PATIENT
  Age: 51 Year
  Sex: Female

DRUGS (1)
  1. ROCURONIUM BROMIDE [Suspect]
     Dosage: 40 MG, QD
     Route: 042
     Dates: start: 20090105, end: 20090105

REACTIONS (1)
  - Ileus paralytic [Recovered/Resolved]
